FAERS Safety Report 10588854 (Version 3)
Quarter: 2015Q3

REPORT INFORMATION
  Report Type: Report from Study
  Country: US (occurrence: US)
  Receive Date: 20141117
  Receipt Date: 20150818
  Transmission Date: 20151125
  Serious: No
  Sender: FDA-Public Use
  Company Number: US-GILEAD-2014-0122345

PATIENT
  Age: 41 Year
  Sex: Female

DRUGS (22)
  1. AMBRISENTAN [Suspect]
     Active Substance: AMBRISENTAN
     Indication: PULMONARY ARTERIAL HYPERTENSION
     Dosage: 10 MG, QD
     Route: 065
     Dates: start: 20110407
  2. LISINOPRIL. [Concomitant]
     Active Substance: LISINOPRIL
  3. SPIRONOLACTONE. [Concomitant]
     Active Substance: SPIRONOLACTONE
  4. DIGOXIN. [Concomitant]
     Active Substance: DIGOXIN
  5. VITAMIN D [Concomitant]
     Active Substance: CHOLECALCIFEROL
  6. ADCIRCA [Concomitant]
     Active Substance: TADALAFIL
  7. FLEXERIL [Concomitant]
     Active Substance: CYCLOBENZAPRINE HYDROCHLORIDE
  8. FOLIC ACID. [Concomitant]
     Active Substance: FOLIC ACID
  9. ENBREL [Concomitant]
     Active Substance: ETANERCEPT
  10. MORPHINE [Concomitant]
     Active Substance: MORPHINE
  11. TOPAMAX [Concomitant]
     Active Substance: TOPIRAMATE
  12. FUROSEMIDE. [Concomitant]
     Active Substance: FUROSEMIDE
  13. ORENITRAM [Suspect]
     Active Substance: TREPROSTINIL
     Indication: UNEVALUABLE EVENT
     Route: 065
     Dates: start: 20140808
  14. GABAPENTIN. [Concomitant]
     Active Substance: GABAPENTIN
  15. XARELTO [Concomitant]
     Active Substance: RIVAROXABAN
  16. POTASSIUM [Concomitant]
     Active Substance: POTASSIUM
  17. PROCHLORPERAZINE. [Concomitant]
     Active Substance: PROCHLORPERAZINE
  18. LORATADINE. [Concomitant]
     Active Substance: LORATADINE
  19. AMBRISENTAN [Suspect]
     Active Substance: AMBRISENTAN
     Indication: RHEUMATIC DISORDER
  20. ZOFRAN [Concomitant]
     Active Substance: ONDANSETRON HYDROCHLORIDE
  21. ARAVA [Concomitant]
     Active Substance: LEFLUNOMIDE
  22. PLAQUENIL [Concomitant]
     Active Substance: HYDROXYCHLOROQUINE SULFATE

REACTIONS (5)
  - Flushing [Not Recovered/Not Resolved]
  - Nausea [Not Recovered/Not Resolved]
  - Palpitations [Not Recovered/Not Resolved]
  - Swelling [Not Recovered/Not Resolved]
  - Oedema peripheral [Unknown]

NARRATIVE: CASE EVENT DATE: 20141007
